FAERS Safety Report 7947089-0 (Version None)
Quarter: 2011Q4

REPORT INFORMATION
  Report Type: 
  Country: None (occurrence: None)
  Receive Date: 20111129
  Receipt Date: 20111118
  Transmission Date: 20120403
  Serious: Yes (Other)
  Sender: FDA-Public Use
  Company Number: AU-BAYER-2011-111310

PATIENT
  Age: 40 Year
  Sex: Female

DRUGS (1)
  1. MIRENA [Suspect]
     Dosage: UNK
     Dates: start: 20110801

REACTIONS (4)
  - THYROID NEOPLASM [None]
  - RASH [None]
  - DEPRESSION [None]
  - DYSPHAGIA [None]
